FAERS Safety Report 6849939-8 (Version None)
Quarter: 2010Q3

REPORT INFORMATION
  Report Type: 
  Country: None (occurrence: None)
  Receive Date: 20100716
  Receipt Date: 20071003
  Transmission Date: 20110219
  Serious: No
  Sender: FDA-Public Use
  Company Number: US-PFIZER INC-2007084859

PATIENT
  Sex: Female
  Weight: 75 kg

DRUGS (5)
  1. CHANTIX [Suspect]
     Indication: SMOKING CESSATION THERAPY
     Route: 048
     Dates: start: 20070921, end: 20071003
  2. LASIX [Concomitant]
     Route: 048
  3. LIPITOR [Concomitant]
     Route: 048
  4. TIAZAC [Concomitant]
     Route: 048
  5. WARFARIN SODIUM [Concomitant]

REACTIONS (1)
  - JOINT SWELLING [None]
